FAERS Safety Report 18972295 (Version 1)
Quarter: 2021Q1

REPORT INFORMATION
  Report Type: Spontaneous
  Country: US (occurrence: US)
  Receive Date: 20210304
  Receipt Date: 20210304
  Transmission Date: 20210420
  Serious: Yes (Hospitalization)
  Sender: FDA-Public Use
  Company Number: None

PATIENT
  Age: 33 Year
  Sex: Male
  Weight: 202.5 kg

DRUGS (1)
  1. BAMLANIVIMAB. [Suspect]
     Active Substance: BAMLANIVIMAB
     Indication: COVID-19
     Dosage: ?          OTHER FREQUENCY:ONCE;?
     Route: 041
     Dates: start: 20210304, end: 20210304

REACTIONS (6)
  - Hypotension [None]
  - Chills [None]
  - Pyrexia [None]
  - Paravenous drug administration [None]
  - Oxygen saturation decreased [None]
  - Infusion site extravasation [None]

NARRATIVE: CASE EVENT DATE: 20210304
